FAERS Safety Report 23297230 (Version 1)
Quarter: 2023Q4

REPORT INFORMATION
  Report Type: Spontaneous
  Country: US (occurrence: US)
  Receive Date: 20231214
  Receipt Date: 20231214
  Transmission Date: 20240110
  Serious: No
  Sender: FDA-Public Use
  Company Number: US-009507513-2311USA006557

PATIENT
  Sex: Female

DRUGS (7)
  1. JANUVIA [Suspect]
     Active Substance: SITAGLIPTIN PHOSPHATE
     Indication: Diabetes mellitus
     Dosage: 25 MG, ONCE DAILY (QD)
     Route: 048
     Dates: start: 202309, end: 20231009
  2. JANUVIA [Suspect]
     Active Substance: SITAGLIPTIN PHOSPHATE
     Indication: Diabetes mellitus
     Dosage: 100 MG, ONCE DAILY (QD)
     Route: 048
     Dates: start: 20231010
  3. CARVEDILOL [Concomitant]
     Active Substance: CARVEDILOL
  4. LOSARTAN [Concomitant]
     Active Substance: LOSARTAN
  5. BRILINTA [Concomitant]
     Active Substance: TICAGRELOR
  6. BUPROPION HYDROCHLORIDE [Concomitant]
     Active Substance: BUPROPION HYDROCHLORIDE
  7. GLIPIZIDE [Concomitant]
     Active Substance: GLIPIZIDE

REACTIONS (5)
  - Product residue present [Not Recovered/Not Resolved]
  - Gastrointestinal disorder [Not Recovered/Not Resolved]
  - Diarrhoea [Not Recovered/Not Resolved]
  - Constipation [Not Recovered/Not Resolved]
  - Product solubility abnormal [Not Recovered/Not Resolved]

NARRATIVE: CASE EVENT DATE: 20230101
